FAERS Safety Report 8490306-1 (Version None)
Quarter: 2012Q3

REPORT INFORMATION
  Report Type: 
  Country: None (occurrence: None)
  Receive Date: 20120705
  Receipt Date: 20120625
  Transmission Date: 20120928
  Serious: Yes (Death, Hospitalization, Other)
  Sender: FDA-Public Use
  Company Number: DK-BAXTER-2012BAX010121

PATIENT
  Sex: Male

DRUGS (4)
  1. CYCLOPHOSPHAMIDE [Suspect]
     Route: 065
     Dates: start: 20110714
  2. MABTHERA [Suspect]
     Route: 065
     Dates: start: 20110714
  3. PREDNISOLONE [Suspect]
     Route: 065
     Dates: start: 20110714
  4. ONCOVIN [Suspect]
     Route: 065
     Dates: start: 20110714

REACTIONS (4)
  - RESPIRATORY FAILURE [None]
  - LEUKOPENIA [None]
  - PNEUMONIA [None]
  - SEPTIC SHOCK [None]
